FAERS Safety Report 7530296-9 (Version None)
Quarter: 2011Q2

REPORT INFORMATION
  Report Type: 
  Country: None (occurrence: None)
  Receive Date: 20110531
  Receipt Date: 20110516
  Transmission Date: 20111010
  Serious: Yes (Death, Other)
  Sender: FDA-Public Use
  Company Number: IL-ACCORD-009273

PATIENT
  Age: 16 Year
  Sex: Male

DRUGS (6)
  1. IMMUNOGLOBULIN G HUMAN (IMMUNOGLOBULIN G HUMAN) [Suspect]
     Indication: PRODUCT USED FOR UNKNOWN INDICATION
  2. INOSIPLEX (INOSIPLEX) [Concomitant]
  3. CARBAMAZEPINE [Suspect]
     Indication: PRODUCT USED FOR UNKNOWN INDICATION
  4. LEVETIRACETAM [Suspect]
     Indication: PRODUCT USED FOR UNKNOWN INDICATION
  5. INTERFERON BETA-1A [Concomitant]
  6. VALPROIC ACID [Suspect]
     Indication: PRODUCT USED FOR UNKNOWN INDICATION

REACTIONS (3)
  - COMA [None]
  - SUBACUTE SCLEROSING PANENCEPHALITIS [None]
  - DRUG INEFFECTIVE [None]
